FAERS Safety Report 25851798 (Version 1)
Quarter: 2025Q3

REPORT INFORMATION
  Report Type: Report from Study
  Country: US (occurrence: US)
  Receive Date: 20250926
  Receipt Date: 20250926
  Transmission Date: 20251020
  Serious: Yes (Other)
  Sender: TAKEDA
  Company Number: US-TAKEDA-2025TUS084254

PATIENT
  Age: 67 Year
  Sex: Female

DRUGS (2)
  1. HUMAN IMMUNOGLOBULIN G [Suspect]
     Active Substance: HUMAN IMMUNOGLOBULIN G
     Indication: Primary immunodeficiency syndrome
     Dosage: UNK UNK, 1/WEEK
  2. CUVITRU [Suspect]
     Active Substance: HUMAN IMMUNOGLOBULIN G
     Indication: Primary immunodeficiency syndrome
     Dosage: 5 GRAM, 1/WEEK

REACTIONS (9)
  - Lymphoma [Unknown]
  - Squamous cell carcinoma [Unknown]
  - Myocardial infarction [Unknown]
  - Pain [Unknown]
  - Gastrointestinal disorder [Not Recovered/Not Resolved]
  - Thyroid disorder [Unknown]
  - Lactose intolerance [Unknown]
  - Cellulitis [Unknown]
  - Arthralgia [Unknown]

NARRATIVE: CASE EVENT DATE: 20250101
